FAERS Safety Report 4609658-5 (Version None)
Quarter: 2005Q1

REPORT INFORMATION
  Report Type: 
  Country: None (occurrence: None)
  Receive Date: 20050316
  Receipt Date: 20040816
  Transmission Date: 20050727
  Serious: Yes (Other)
  Sender: FDA-Public Use
  Company Number: US-BRISTOL-MYERS SQUIBB COMPANY-12672606

PATIENT
  Age: 59 Year
  Sex: Female

DRUGS (5)
  1. ESTRACE [Suspect]
     Indication: HORMONE REPLACEMENT THERAPY
     Dosage: DOSE: 2MG DAILY DAYS 1-25
     Dates: start: 19861004, end: 19950901
  2. MICRONOR [Suspect]
     Indication: HORMONE REPLACEMENT THERAPY
     Dates: end: 19950901
  3. PREMARIN [Suspect]
     Indication: HORMONE REPLACEMENT THERAPY
     Dates: start: 19950925, end: 19960101
  4. PREMPRO [Suspect]
     Indication: HORMONE REPLACEMENT THERAPY
     Dates: start: 19961002, end: 20010501
  5. PROVERA [Suspect]
     Indication: HORMONE REPLACEMENT THERAPY
     Dates: start: 19950925, end: 19960101

REACTIONS (1)
  - BREAST CANCER [None]
